FAERS Safety Report 21484581 (Version 2)
Quarter: 2022Q4

REPORT INFORMATION
  Report Type: Spontaneous
  Country: GR (occurrence: GR)
  Receive Date: 20221020
  Receipt Date: 20221110
  Transmission Date: 20230113
  Serious: Yes (Other)
  Sender: FDA-Public Use
  Company Number: GR-ROCHE-3177113

PATIENT
  Sex: Male

DRUGS (30)
  1. DOXORUBICIN [Suspect]
     Active Substance: DOXORUBICIN
     Indication: Richter^s syndrome
     Dosage: UNK, 4 LINE THERAPY, CHOP
     Route: 042
     Dates: start: 20220715, end: 20220809
  2. CYCLOPHOSPHAMIDE [Suspect]
     Active Substance: CYCLOPHOSPHAMIDE
     Indication: Richter^s syndrome
     Dosage: (DOSAGE FORM:  POWDER FOR SOLUTION) 1 LINE THERAPY
     Route: 042
     Dates: start: 20150501, end: 20161101
  3. CYCLOPHOSPHAMIDE [Suspect]
     Active Substance: CYCLOPHOSPHAMIDE
     Indication: Chronic lymphocytic leukaemia
     Dosage: 4 LINE THERAPY, CHOP
     Route: 042
     Dates: start: 20220715, end: 20220809
  4. CYCLOPHOSPHAMIDE [Suspect]
     Active Substance: CYCLOPHOSPHAMIDE
     Dosage: UNK
     Route: 065
  5. PREDNISONE [Suspect]
     Active Substance: PREDNISONE
     Indication: Richter^s syndrome
     Dosage: 4 LINE THERAPY, CHOP
     Route: 042
     Dates: start: 20220715, end: 20220809
  6. VINCRISTINE SULFATE [Suspect]
     Active Substance: VINCRISTINE SULFATE
     Indication: Richter^s syndrome
     Dosage: 4 LINE THERAPY, CHOP
     Route: 042
     Dates: start: 20220715, end: 20220809
  7. FLUDARABINE [Suspect]
     Active Substance: FLUDARABINE PHOSPHATE
     Indication: Chronic lymphocytic leukaemia
     Dosage: (DOSAGE FORM: SOLUTION FOR INFUSION) 1 LINE THERAPY
     Route: 042
     Dates: start: 20150501, end: 20161101
  8. FLUDARABINE [Suspect]
     Active Substance: FLUDARABINE PHOSPHATE
     Indication: Richter^s syndrome
     Dosage: (DOSAGE FORM: UNKNOWN) 1 LINE THERAPY
     Route: 042
     Dates: start: 20150501, end: 20161101
  9. OFATUMUMAB [Suspect]
     Active Substance: OFATUMUMAB
     Indication: Richter^s syndrome
     Dosage: (DOSAGE FORM:SOLUTION FOR INJECTION) 1 LINE THERAPY
     Route: 065
     Dates: start: 20150501, end: 20161101
  10. CYTARABINE [Suspect]
     Active Substance: CYTARABINE
     Indication: Richter^s syndrome
     Dosage: 5 LINE THERAPY
     Route: 042
     Dates: start: 20220822, end: 20220826
  11. CYTARABINE [Suspect]
     Active Substance: CYTARABINE
     Dosage: 5 LINE THERAPY (DOSAGE FORM: POWDER FOR INFUSION)
     Route: 042
     Dates: start: 20220822, end: 20220826
  12. IMBRUVICA [Suspect]
     Active Substance: IBRUTINIB
     Indication: Richter^s syndrome
     Dosage: 2 LINE THERAPY (DOSAGE FORM: UNKNOWN)
     Route: 042
     Dates: start: 20180424, end: 20200801
  13. IMBRUVICA [Suspect]
     Active Substance: IBRUTINIB
     Indication: Chronic lymphocytic leukaemia
  14. VENETOCLAX [Suspect]
     Active Substance: VENETOCLAX
     Indication: Richter^s syndrome
     Dosage: 3 LINE THERAPY (DOSAGE FORM: UNKNOWN)
     Route: 042
     Dates: start: 20200813, end: 20220714
  15. VENETOCLAX [Suspect]
     Active Substance: VENETOCLAX
     Dosage: 3 LINE THERAPY (DOSAGE FORM: CAPSULE)
     Route: 042
     Dates: start: 20200813, end: 20220714
  16. DEXAMETHASONE [Suspect]
     Active Substance: DEXAMETHASONE
     Indication: Richter^s syndrome
     Dosage: (DOSAGE FORM: ORAL LIQUID)5 LINE THERAPY
     Route: 042
     Dates: start: 20220822, end: 20220826
  17. DEXAMETHASONE [Suspect]
     Active Substance: DEXAMETHASONE
     Dosage: (DOSAGE FORM: UNKNOWN) 5 LINE THERAPY
     Route: 042
     Dates: start: 20220822, end: 20220826
  18. CYTARABINE [Suspect]
     Active Substance: CYTARABINE
     Indication: Richter^s syndrome
     Dosage: 5 LINE THERAPY
     Route: 042
     Dates: start: 20220822, end: 20220826
  19. CISPLATIN [Suspect]
     Active Substance: CISPLATIN
     Indication: Richter^s syndrome
     Dosage: 5 LINE THERAPY(DOSAGE FORM: INJECTION)
     Route: 042
     Dates: start: 20220822, end: 20220826
  20. RITUXIMAB [Suspect]
     Active Substance: RITUXIMAB
     Indication: Richter^s syndrome
     Dosage: 1/MAY/2015 TO 1/NOV/2016: 1ST LINE
     Route: 042
     Dates: start: 20220715, end: 20220809
  21. RITUXIMAB [Suspect]
     Active Substance: RITUXIMAB
     Indication: Chronic lymphocytic leukaemia
  22. ETOPOSIDE [Suspect]
     Active Substance: ETOPOSIDE
     Indication: Richter^s syndrome
     Dosage: UNK
     Route: 042
     Dates: start: 20220715, end: 20220809
  23. ONDANSETRON [Concomitant]
     Active Substance: ONDANSETRON
     Indication: Product used for unknown indication
     Route: 065
  24. ACYCLOVIR [Concomitant]
     Active Substance: ACYCLOVIR
     Indication: Product used for unknown indication
     Route: 065
  25. TRANEXAMIC ACID [Concomitant]
     Active Substance: TRANEXAMIC ACID
     Indication: Product used for unknown indication
     Route: 065
  26. ALLOPURINOL [Concomitant]
     Active Substance: ALLOPURINOL
     Indication: Product used for unknown indication
     Route: 065
  27. FLUCONAZOLE [Concomitant]
     Active Substance: FLUCONAZOLE
     Indication: Product used for unknown indication
     Route: 065
  28. ONDANSETRON HYDROCHLORIDE [Concomitant]
     Active Substance: ONDANSETRON HYDROCHLORIDE
     Indication: Product used for unknown indication
     Route: 065
  29. ONDANSETRON [Concomitant]
     Active Substance: ONDANSETRON
     Indication: Product used for unknown indication
     Route: 065
  30. FLUCONAZOLE TEVA [Concomitant]
     Indication: Product used for unknown indication
     Route: 065

REACTIONS (6)
  - Febrile neutropenia [Unknown]
  - Therapy partial responder [Unknown]
  - Off label use [Unknown]
  - Disease progression [Unknown]
  - Drug hypersensitivity [Unknown]
  - Bacterial infection [Unknown]
